FAERS Safety Report 13306208 (Version 1)
Quarter: 2017Q1

REPORT INFORMATION
  Report Type: Spontaneous
  Country: US (occurrence: US)
  Receive Date: 20170308
  Receipt Date: 20170308
  Transmission Date: 20170428
  Serious: No
  Sender: FDA-Public Use
  Company Number: US-BAYER-2017-044560

PATIENT
  Age: 72 Year
  Sex: Female

DRUGS (3)
  1. CITRATE OF MAGNESIUM [Concomitant]
     Active Substance: MAGNESIUM CITRATE
     Dosage: 10 OUNCES WILL BE CONSUMED ON THE MORNING OF THE COLONOSCOPY
  2. CRESTOR [Concomitant]
     Active Substance: ROSUVASTATIN CALCIUM
  3. MIRALAX [Suspect]
     Active Substance: POLYETHYLENE GLYCOL 3350
     Indication: COLONOSCOPY
     Dosage: 14 DF, UNK (PRESCRIBED 1/2 OF 238 GRAMS IN 16 OUNCES OF GATORADE)
     Route: 048

REACTIONS (1)
  - Circumstance or information capable of leading to medication error [Unknown]
